FAERS Safety Report 25288600 (Version 1)
Quarter: 2025Q2

REPORT INFORMATION
  Report Type: Spontaneous
  Country: GB (occurrence: GB)
  Receive Date: 20250509
  Receipt Date: 20250509
  Transmission Date: 20250717
  Serious: Yes (Other)
  Sender: PFIZER
  Company Number: GB-MHRA-TPP17406842C10696284YC1746525305746

PATIENT
  Age: 70 Year
  Sex: Male
  Weight: 90 kg

DRUGS (10)
  1. RIMEGEPANT [Suspect]
     Active Substance: RIMEGEPANT
  2. MOMETASONE [Concomitant]
     Active Substance: MOMETASONE
     Dosage: USE TWO SPRAYS INTO EACH NOSTRIL TWICE A DAY FOR 14 DAYS
     Dates: start: 20250317, end: 20250331
  3. FEXOFENADINE [Concomitant]
     Active Substance: FEXOFENADINE HYDROCHLORIDE
     Dosage: TAKE ONE DAILY
     Dates: start: 20250506
  4. ASPIRIN [Concomitant]
     Active Substance: ASPIRIN
     Dates: start: 20240828
  5. BISOPROLOL [Concomitant]
     Active Substance: BISOPROLOL
     Dates: start: 20240828
  6. LANSOPRAZOLE [Concomitant]
     Active Substance: LANSOPRAZOLE
     Dates: start: 20240828
  7. LEVOTHYROXINE [Concomitant]
     Active Substance: LEVOTHYROXINE
     Dates: start: 20240828
  8. RAMIPRIL [Concomitant]
     Active Substance: RAMIPRIL
     Dates: start: 20240828
  9. ZOPICLONE [Concomitant]
     Active Substance: ZOPICLONE
     Dates: start: 20240828
  10. SIMVASTATIN [Concomitant]
     Active Substance: SIMVASTATIN
     Dosage: TAKE ONE AT NIGHT
     Dates: start: 20240925

REACTIONS (3)
  - Dyspnoea [Recovering/Resolving]
  - Lethargy [Recovering/Resolving]
  - Urticaria [Recovering/Resolving]
